FAERS Safety Report 4377121-5 (Version None)
Quarter: 2004Q2

REPORT INFORMATION
  Report Type: 
  Country: None (occurrence: None)
  Receive Date: 20040615
  Receipt Date: 20040603
  Transmission Date: 20050107
  Serious: Yes (Hospitalization, Other)
  Sender: FDA-Public Use
  Company Number: DE-BRISTOL-MYERS SQUIBB COMPANY-12604013

PATIENT
  Age: 61 Year
  Sex: Female
  Weight: 86 kg

DRUGS (2)
  1. CARBOPLATIN [Suspect]
     Indication: CARCINOMA
     Dosage: 2ND CYCLE ADMINISTERED ON 18-MAY-2004
     Route: 042
  2. CAELYX [Suspect]
     Indication: CARCINOMA
     Dosage: 2ND CYCLE ADMINISTERED ON 18-MAY-2004
     Route: 042

REACTIONS (2)
  - CHEST X-RAY ABNORMAL [None]
  - DEEP VEIN THROMBOSIS [None]
